FAERS Safety Report 4610892-9 (Version None)
Quarter: 2005Q1

REPORT INFORMATION
  Report Type: 
  Country: None (occurrence: None)
  Receive Date: 20050317
  Receipt Date: 20050311
  Transmission Date: 20050727
  Serious: Yes (Hospitalization)
  Sender: FDA-Public Use
  Company Number: US-ABBOTT-05P-163-0293656-00

PATIENT
  Age: 44 Year
  Sex: Female

DRUGS (1)
  1. DILAUDID [Suspect]
     Indication: MYOCARDIAL INFARCTION
     Route: 042

REACTIONS (2)
  - CARDIAC FAILURE CONGESTIVE [None]
  - RESPIRATORY DEPRESSION [None]
